FAERS Safety Report 17246102 (Version 2)
Quarter: 2020Q1

REPORT INFORMATION
  Report Type: Spontaneous
  Country: US (occurrence: US)
  Receive Date: 20200108
  Receipt Date: 20200110
  Transmission Date: 20200409
  Serious: Yes (Hospitalization)
  Sender: FDA-Public Use
  Company Number: US-ROCHE-2517943

PATIENT
  Age: 13 Year
  Sex: Female

DRUGS (1)
  1. PULMOZYME [Suspect]
     Active Substance: DORNASE ALFA
     Indication: PRODUCT USED FOR UNKNOWN INDICATION
     Dosage: STRENGTH: 1MG/ML REFRIGERATED AMPOULE
     Route: 055
     Dates: start: 2011

REACTIONS (2)
  - Cystic fibrosis [Unknown]
  - Pneumonia [Unknown]

NARRATIVE: CASE EVENT DATE: 20190701
